FAERS Safety Report 6791411-8 (Version None)
Quarter: 2010Q2

REPORT INFORMATION
  Report Type: 
  Country: None (occurrence: None)
  Receive Date: 20100624
  Receipt Date: 20100617
  Transmission Date: 20101027
  Serious: Yes (Other)
  Sender: FDA-Public Use
  Company Number: FR-ABBOTT-10P-056-0652431-00

PATIENT
  Age: 31 Year
  Sex: Female

DRUGS (2)
  1. KALETRA [Suspect]
     Indication: HIV INFECTION
     Dosage: 200MG/50MG
     Route: 048
     Dates: start: 20091214
  2. TRUVADA [Concomitant]
     Indication: HIV INFECTION
     Dates: start: 20091214

REACTIONS (2)
  - DIARRHOEA [None]
  - LIPODYSTROPHY ACQUIRED [None]
